FAERS Safety Report 17997579 (Version 4)
Quarter: 2021Q3

REPORT INFORMATION
  Report Type: Report from Study
  Country: FR (occurrence: FR)
  Receive Date: 20200709
  Receipt Date: 20210929
  Transmission Date: 20211014
  Serious: Yes (Hospitalization)
  Sender: FDA-Public Use
  Company Number: FR-ROCHE-2637460

PATIENT
  Age: 54 Year
  Sex: Male
  Weight: 71 kg

DRUGS (2)
  1. ATEZOLIZUMAB. [Suspect]
     Active Substance: ATEZOLIZUMAB
     Indication: SOFT TISSUE SARCOMA
     Route: 042
     Dates: start: 20200527
  2. COBIMETINIB. [Suspect]
     Active Substance: COBIMETINIB
     Indication: SOFT TISSUE SARCOMA
     Dosage: 21 DAYS ON / 7 DAYS OFF,
     Route: 048
     Dates: start: 20200527, end: 20200703

REACTIONS (3)
  - Nausea [Recovered/Resolved]
  - Diarrhoea [Recovered/Resolved]
  - Vomiting [Recovered/Resolved]

NARRATIVE: CASE EVENT DATE: 20200703
